FAERS Safety Report 19805345 (Version 1)
Quarter: 2021Q3

REPORT INFORMATION
  Report Type: Spontaneous
  Country: CN (occurrence: CN)
  Receive Date: 20210908
  Receipt Date: 20210908
  Transmission Date: 20211014
  Serious: Yes (Disabling)
  Sender: FDA-Public Use
  Company Number: CN-ASTRAZENECA-2021A703948

PATIENT
  Age: 67 Year
  Sex: Male
  Weight: 80.7 kg

DRUGS (3)
  1. DURVALUMAB. [Suspect]
     Active Substance: DURVALUMAB
     Indication: LUNG NEOPLASM MALIGNANT
     Route: 041
     Dates: start: 20201104, end: 20210604
  2. ETOPOSIDE. [Suspect]
     Active Substance: ETOPOSIDE
     Indication: LUNG NEOPLASM MALIGNANT
     Route: 041
     Dates: start: 20201104, end: 20201108
  3. LOBAPLATIN [Suspect]
     Active Substance: LOBAPLATIN
     Indication: LUNG NEOPLASM MALIGNANT
     Route: 041
     Dates: start: 20201104, end: 20210605

REACTIONS (2)
  - Platelet count decreased [Recovered/Resolved]
  - Heart injury [Recovered/Resolved]

NARRATIVE: CASE EVENT DATE: 20210604
